FAERS Safety Report 6305008-7 (Version None)
Quarter: 2009Q3

REPORT INFORMATION
  Report Type: 
  Country: None (occurrence: None)
  Receive Date: 20090811
  Receipt Date: 20090730
  Transmission Date: 20100115
  Serious: Yes (Hospitalization)
  Sender: FDA-Public Use
  Company Number: IN-ELI_LILLY_AND_COMPANY-IN200907006783

PATIENT
  Sex: Male

DRUGS (1)
  1. GEMCITE [Suspect]
     Dosage: UNK, UNKNOWN
     Route: 042
     Dates: start: 20090701, end: 20090701

REACTIONS (1)
  - LEFT VENTRICULAR DYSFUNCTION [None]
